FAERS Safety Report 20932624 (Version 1)
Quarter: 2022Q2

REPORT INFORMATION
  Report Type: Other
  Country: US (occurrence: None)
  Receive Date: 20220608
  Receipt Date: 20220608
  Transmission Date: 20220720
  Serious: No
  Sender: FDA-Public Use
  Company Number: US-ROCHE-3113624

PATIENT
  Sex: Male

DRUGS (1)
  1. OCREVUS [Suspect]
     Active Substance: OCRELIZUMAB
     Indication: Multiple sclerosis
     Dosage: DISPENSE 300MG DAY 1 AND 300MG 15, INFUSE 600MG ONCE IN 6 MONTHS
     Route: 042
     Dates: start: 20200505

REACTIONS (1)
  - Staphylococcal infection [Unknown]
